FAERS Safety Report 18012455 (Version 4)
Quarter: 2021Q2

REPORT INFORMATION
  Report Type: Spontaneous
  Country: US (occurrence: US)
  Receive Date: 20200713
  Receipt Date: 20210629
  Transmission Date: 20210717
  Serious: No
  Sender: FDA-Public Use
  Company Number: US-TEVA-2020-US-1799680

PATIENT
  Age: 71 Year
  Sex: Male

DRUGS (1)
  1. CLONIDINE TEVA [Suspect]
     Active Substance: CLONIDINE
     Route: 062
     Dates: start: 2019

REACTIONS (6)
  - Application site rash [Recovered/Resolved]
  - Product quality issue [Unknown]
  - Product adhesion issue [Recovered/Resolved]
  - Application site erythema [Not Recovered/Not Resolved]
  - Application site pruritus [Recovered/Resolved]
  - Application site mass [Not Recovered/Not Resolved]
